FAERS Safety Report 15163331 (Version 3)
Quarter: 2019Q1

REPORT INFORMATION
  Report Type: Report from Study
  Country: BR (occurrence: BR)
  Receive Date: 20180719
  Receipt Date: 20190301
  Transmission Date: 20190417
  Serious: No
  Sender: FDA-Public Use
  Company Number: PHHY2018BR046812

PATIENT
  Sex: Female
  Weight: 84 kg

DRUGS (4)
  1. SANDOSTATIN LAR DEPOT [Suspect]
     Active Substance: OCTREOTIDE ACETATE
     Indication: ACROMEGALY
     Dosage: 30 MG, QMO
     Route: 030
     Dates: start: 2009
  2. SANDOSTATIN LAR DEPOT [Suspect]
     Active Substance: OCTREOTIDE ACETATE
     Dosage: 40 MG, UNK
     Route: 030
     Dates: start: 201811
  3. SANDOSTATIN LAR DEPOT [Suspect]
     Active Substance: OCTREOTIDE ACETATE
     Dosage: 40 MG, QMO (ONCE EVERY 28 DAYS)
     Route: 030
  4. SANDOSTATIN LAR DEPOT [Suspect]
     Active Substance: OCTREOTIDE ACETATE
     Dosage: UNK
     Route: 030
     Dates: start: 20190106

REACTIONS (9)
  - Malaise [Recovered/Resolved]
  - Abdominal pain upper [Unknown]
  - Thyroid mass [Unknown]
  - Injection site haemorrhage [Unknown]
  - Chromaturia [Recovered/Resolved]
  - Drug ineffective [Not Recovered/Not Resolved]
  - Nodule [Unknown]
  - Pollakiuria [Unknown]
  - Urinary incontinence [Recovered/Resolved]
